FAERS Safety Report 5448587-4 (Version None)
Quarter: 2007Q3

REPORT INFORMATION
  Report Type: 
  Country: None (occurrence: None)
  Receive Date: 20070911
  Receipt Date: 20070906
  Transmission Date: 20080115
  Serious: Yes (Life-Threatening, Hospitalization, Other)
  Sender: FDA-Public Use
  Company Number: IT-ASTRAZENECA-2007SE04751

PATIENT
  Age: 28100 Day
  Sex: Male

DRUGS (6)
  1. ROSUVASTATIN [Suspect]
     Indication: HYPERCHOLESTEROLAEMIA
     Route: 048
     Dates: start: 20070711
  2. METFONORM [Concomitant]
     Indication: DIABETES MELLITUS
     Route: 048
     Dates: start: 20070101
  3. LOPRESSOR [Concomitant]
     Indication: HYPERTENSION
     Route: 048
     Dates: start: 19930101
  4. MONOPINA [Concomitant]
     Indication: HYPERTENSION
     Route: 048
     Dates: start: 19930101
  5. ASPIRIN [Concomitant]
     Indication: THROMBOSIS PROPHYLAXIS
     Route: 048
     Dates: start: 19930101
  6. UNIPRIL [Concomitant]
     Indication: HYPERTENSION
     Route: 048
     Dates: start: 19930101

REACTIONS (1)
  - CARDIAC FAILURE [None]
